FAERS Safety Report 6645549-6 (Version None)
Quarter: 2010Q1

REPORT INFORMATION
  Report Type: 
  Country: None (occurrence: None)
  Receive Date: 20100323
  Receipt Date: 20100305
  Transmission Date: 20100710
  Serious: No
  Sender: FDA-Public Use
  Company Number: 2009BI019461

PATIENT
  Sex: Female

DRUGS (1)
  1. TYSABRI [Suspect]
     Indication: MULTIPLE SCLEROSIS
     Route: 042
     Dates: start: 20070530

REACTIONS (6)
  - BLADDER PROLAPSE [None]
  - CYSTOPEXY [None]
  - DENTAL CARIES [None]
  - POLLAKIURIA [None]
  - TOOTH LOSS [None]
  - URINARY INCONTINENCE [None]
